FAERS Safety Report 17362397 (Version 1)
Quarter: 2020Q1

REPORT INFORMATION
  Report Type: Spontaneous
  Country: US (occurrence: US)
  Receive Date: 20200201
  Receipt Date: 20200201
  Transmission Date: 20200409
  Serious: Yes (Other)
  Sender: FDA-Public Use
  Company Number: None

PATIENT
  Age: 35 Year
  Sex: Male
  Weight: 109.44 kg

DRUGS (8)
  1. LAMOTRIGINE. [Concomitant]
     Active Substance: LAMOTRIGINE
  2. TADALAFIL. [Concomitant]
     Active Substance: TADALAFIL
  3. TESTOSTERONE TD [Concomitant]
  4. PERPHENAZINE. [Concomitant]
     Active Substance: PERPHENAZINE
  5. PROPRANOLOL [Concomitant]
     Active Substance: PROPRANOLOL HYDROCHLORIDE
  6. GABAPENTIN. [Concomitant]
     Active Substance: GABAPENTIN
  7. BUPRENORPHINE/NALOXONE SUBLINGUAL FILM [Suspect]
     Active Substance: BUPRENORPHINE\NALOXONE
     Indication: DRUG DEPENDENCE
     Route: 060
     Dates: end: 20200129
  8. CLONAZEPAM. [Concomitant]
     Active Substance: CLONAZEPAM

REACTIONS (4)
  - Product substitution issue [None]
  - Drug withdrawal syndrome [None]
  - Product physical issue [None]
  - Product quality issue [None]

NARRATIVE: CASE EVENT DATE: 20200129
